FAERS Safety Report 23766964 (Version 1)
Quarter: 2024Q2

REPORT INFORMATION
  Report Type: Spontaneous
  Country: US (occurrence: US)
  Receive Date: 20240422
  Receipt Date: 20240422
  Transmission Date: 20240716
  Serious: Yes (Hospitalization)
  Sender: FDA-Public Use
  Company Number: US-drreddys-LIT/USA/22/0153060

PATIENT
  Age: 6 Year
  Sex: Male

DRUGS (8)
  1. LENALIDOMIDE [Suspect]
     Active Substance: LENALIDOMIDE
     Indication: Central nervous system neoplasm
     Dosage: 1-21 OF EACH 28-DAY CYCLE
  2. LENALIDOMIDE [Suspect]
     Active Substance: LENALIDOMIDE
     Indication: Peripheral nervous system neoplasm
  3. LENALIDOMIDE [Suspect]
     Active Substance: LENALIDOMIDE
     Indication: Neoplasm recurrence
  4. LENALIDOMIDE [Suspect]
     Active Substance: LENALIDOMIDE
     Indication: Astrocytoma
  5. TRAMETINIB [Suspect]
     Active Substance: TRAMETINIB
     Indication: Central nervous system neoplasm
  6. TRAMETINIB [Suspect]
     Active Substance: TRAMETINIB
     Indication: Peripheral nervous system neoplasm
  7. TRAMETINIB [Suspect]
     Active Substance: TRAMETINIB
     Indication: Neoplasm recurrence
  8. TRAMETINIB [Suspect]
     Active Substance: TRAMETINIB
     Indication: Astrocytoma

REACTIONS (5)
  - Drug interaction [Unknown]
  - Ischaemic cerebral infarction [Unknown]
  - Blindness [Unknown]
  - Treatment failure [Unknown]
  - Embolism [Unknown]
